FAERS Safety Report 9188297 (Version 1)
Quarter: 2013Q1

REPORT INFORMATION
  Report Type: Report from Study
  Country: DE (occurrence: DE)
  Receive Date: 20130325
  Receipt Date: 20130325
  Transmission Date: 20140127
  Serious: Yes (Death, Hospitalization)
  Sender: FDA-Public Use
  Company Number: DE-ACTELION-A-US2013-78264

PATIENT
  Age: 70 Year
  Sex: Female

DRUGS (3)
  1. VENTAVIS [Suspect]
     Indication: PULMONARY ARTERIAL HYPERTENSION
     Dosage: 5 MCG, Q4HRS
     Route: 055
     Dates: start: 20090724
  2. TRACLEER [Concomitant]
  3. ADCIRCA [Concomitant]

REACTIONS (2)
  - Death [Fatal]
  - Oedema peripheral [Unknown]
